FAERS Safety Report 17919777 (Version 2)
Quarter: 2020Q3

REPORT INFORMATION
  Report Type: Spontaneous
  Country: US (occurrence: US)
  Receive Date: 20200619
  Receipt Date: 20200921
  Transmission Date: 20201103
  Serious: Yes (Other)
  Sender: FDA-Public Use
  Company Number: US-GILEAD-2020-0473916

PATIENT
  Age: 48 Year
  Sex: Male
  Weight: 113.38 kg

DRUGS (14)
  1. ENOXAPARIN [Concomitant]
     Active Substance: ENOXAPARIN
     Indication: THROMBOSIS PROPHYLAXIS
     Dosage: 40 MG, QD
     Route: 058
     Dates: start: 20200531, end: 20200606
  2. SENNA AND DOCUSATE SODIUM [Concomitant]
     Active Substance: DOCUSATE SODIUM\SENNOSIDES
     Dosage: 2 TAB QHS
     Route: 048
     Dates: start: 20200601, end: 20200605
  3. GUAIFENESIN + CODEINE [Concomitant]
     Indication: COUGH
     Dosage: 5 ML
     Route: 048
     Dates: start: 20200530, end: 20200606
  4. INSULIN GLARGINE [Concomitant]
     Active Substance: INSULIN GLARGINE
     Dosage: 5 UNITS
     Route: 058
     Dates: start: 20200604, end: 20200605
  5. MARAVIROC [Concomitant]
     Active Substance: MARAVIROC
     Dosage: 300 MG Q12H
     Route: 048
     Dates: start: 20200530, end: 20200603
  6. REMDESIVIR. [Suspect]
     Active Substance: REMDESIVIR
     Indication: COVID-19
     Dosage: 200 MG, QD
     Route: 042
     Dates: start: 20200602, end: 20200602
  7. INSULIN LISPRO [Concomitant]
     Active Substance: INSULIN LISPRO
     Dosage: 1?8
     Route: 058
     Dates: start: 20200602, end: 20200605
  8. AZITHROMYCIN ANHYDROUS. [Concomitant]
     Active Substance: AZITHROMYCIN ANHYDROUS
     Dosage: 500 MG, ONCE
     Route: 042
     Dates: start: 20200529, end: 20200529
  9. TRAZODONE [Concomitant]
     Active Substance: TRAZODONE HYDROCHLORIDE
     Dosage: 50 MG, QHS PRN
     Route: 048
     Dates: start: 20200530, end: 20200605
  10. ACETAMINOPHEN. [Concomitant]
     Active Substance: ACETAMINOPHEN
     Indication: PYREXIA
     Dosage: 650 MG, Q4HR
     Route: 048
     Dates: start: 20200529, end: 20200602
  11. METHYLPREDNISOLONE. [Concomitant]
     Active Substance: METHYLPREDNISOLONE
     Indication: COVID-19
     Dosage: 40 MG, BID
     Route: 042
     Dates: start: 20200531, end: 20200605
  12. GUAIFENESIN + CODEINE [Concomitant]
     Indication: ILL-DEFINED DISORDER
  13. CALCIUM CARBONATE. [Concomitant]
     Active Substance: CALCIUM CARBONATE
     Dosage: 1000 MG, BID
     Route: 048
     Dates: start: 20200530, end: 20200606
  14. ERGOCALCIFEROL. [Concomitant]
     Active Substance: ERGOCALCIFEROL
     Indication: VITAMIN D DEFICIENCY
     Dosage: 50,000 UNITS WEEKLY
     Route: 048
     Dates: start: 20200531, end: 20200531

REACTIONS (1)
  - Alanine aminotransferase increased [Recovering/Resolving]

NARRATIVE: CASE EVENT DATE: 20200602
